FAERS Safety Report 17122144 (Version 2)
Quarter: 2019Q4

REPORT INFORMATION
  Report Type: Spontaneous
  Country: GR (occurrence: GR)
  Receive Date: 20191206
  Receipt Date: 20191231
  Transmission Date: 20200122
  Serious: Yes (Death, Other)
  Sender: FDA-Public Use
  Company Number: GR-MYLANLABS-2019M1120384

PATIENT
  Age: 79 Year
  Sex: Female

DRUGS (10)
  1. PANOBINOSTAT [Suspect]
     Active Substance: PANOBINOSTAT
     Indication: PLASMACYTOMA
     Dosage: UNKNOWN DOSAGE
  2. IXAZOMIB [Suspect]
     Active Substance: IXAZOMIB
     Indication: PLASMA CELL MYELOMA
  3. DOXORUBICIN [Suspect]
     Active Substance: DOXORUBICIN
     Indication: PRODUCT USED FOR UNKNOWN INDICATION
     Dosage: UNKNOWN DOSAGE
  4. BORTEZOMIB. [Suspect]
     Active Substance: BORTEZOMIB
     Indication: PLASMA CELL MYELOMA
     Dosage: UNKNOWN DOSAGE
  5. POMALIDOMIDE [Suspect]
     Active Substance: POMALIDOMIDE
     Indication: PLASMA CELL MYELOMA
     Dosage: UNKNOWN DOSAGE
  6. LENALIDOMIDE [Suspect]
     Active Substance: LENALIDOMIDE
     Indication: PLASMA CELL MYELOMA
     Dosage: UNKNOWN DOSAGE
  7. DARATUMUMAB [Suspect]
     Active Substance: DARATUMUMAB
     Indication: PLASMA CELL MYELOMA
     Dosage: UNKNOWN DOSAGE
  8. DEXAMETHASONE. [Suspect]
     Active Substance: DEXAMETHASONE
     Indication: PLASMA CELL MYELOMA
     Dosage: UNKNOWN DOSAGE
  9. IXAZOMIB [Suspect]
     Active Substance: IXAZOMIB
     Indication: PLASMA CELL LEUKAEMIA
     Dosage: UNKNOWN DOSAGE
  10. PANOBINOSTAT [Suspect]
     Active Substance: PANOBINOSTAT
     Indication: PLASMA CELL MYELOMA

REACTIONS (8)
  - Abdominal pain [Unknown]
  - Plasma cell myeloma [Unknown]
  - Diarrhoea [Unknown]
  - Drug ineffective [Unknown]
  - Lymphadenopathy [Unknown]
  - Respiratory tract infection [Fatal]
  - Plasmacytoma [Not Recovered/Not Resolved]
  - Product use in unapproved indication [Unknown]
